FAERS Safety Report 9667753 (Version 2)
Quarter: 2013Q4

REPORT INFORMATION
  Report Type: Spontaneous
  Country: KR (occurrence: KR)
  Receive Date: 20131104
  Receipt Date: 20131126
  Transmission Date: 20140711
  Serious: Yes (Death, Hospitalization)
  Sender: FDA-Public Use
  Company Number: KR-BAYER-2013-133528

PATIENT
  Age: 80 Year
  Sex: Male

DRUGS (5)
  1. GADOVIST [Suspect]
     Indication: NUCLEAR MAGNETIC RESONANCE IMAGING ABDOMINAL
     Dosage: 7.5 ML, QD
     Route: 042
     Dates: start: 20131030, end: 20131030
  2. DIPHERELINE [Concomitant]
     Dosage: 11.25MG/V
  3. ASPIRIN [Concomitant]
  4. LASIX [Concomitant]
     Dosage: 0.5 T
  5. PLETAAL [Concomitant]
     Dosage: 50 MG, UNK

REACTIONS (12)
  - Acute pulmonary oedema [Fatal]
  - Chest discomfort [Fatal]
  - Urinary retention [Not Recovered/Not Resolved]
  - Nausea [Not Recovered/Not Resolved]
  - Vomiting [Not Recovered/Not Resolved]
  - Cold sweat [Not Recovered/Not Resolved]
  - Lethargy [Not Recovered/Not Resolved]
  - Pallor [Not Recovered/Not Resolved]
  - Cyanosis [Not Recovered/Not Resolved]
  - Body temperature decreased [Not Recovered/Not Resolved]
  - Diarrhoea [Not Recovered/Not Resolved]
  - Hypotension [None]
